FAERS Safety Report 4477538-4 (Version None)
Quarter: 2004Q4

REPORT INFORMATION
  Report Type: 
  Country: None (occurrence: None)
  Receive Date: 20041013
  Receipt Date: 20040922
  Transmission Date: 20050328
  Serious: Yes (Life-Threatening, Hospitalization, Other)
  Sender: FDA-Public Use
  Company Number: JP_040804323

PATIENT
  Age: 64 Year
  Sex: Female
  Weight: 40 kg

DRUGS (8)
  1. PERMAX [Suspect]
     Indication: PARKINSON'S DISEASE
     Dosage: 1000 UG DAY
     Dates: start: 19980924
  2. CARBIDOPA AND LEVODOPA [Concomitant]
  3. ARTANE [Concomitant]
  4. SYMMETREL [Concomitant]
  5. PARLODEL [Concomitant]
  6. SELBEX (TEPRENONE) [Concomitant]
  7. MAGNESIUM OXIDE [Concomitant]
  8. CABERGOLINE [Concomitant]

REACTIONS (16)
  - AORTIC VALVE INCOMPETENCE [None]
  - BLOOD PRESSURE DECREASED [None]
  - CARDIAC ARREST [None]
  - CARDIAC VALVE DISEASE [None]
  - CARDIOMEGALY [None]
  - CARDIOMYOPATHY [None]
  - CHEST PAIN [None]
  - DISSEMINATED INTRAVASCULAR COAGULATION [None]
  - MITRAL VALVE INCOMPETENCE [None]
  - PALPITATIONS [None]
  - PCO2 INCREASED [None]
  - PLEURAL EFFUSION [None]
  - PO2 DECREASED [None]
  - RIGHT VENTRICULAR FAILURE [None]
  - SICK SINUS SYNDROME [None]
  - TRICUSPID VALVE INCOMPETENCE [None]
